FAERS Safety Report 16167800 (Version 2)
Quarter: 2019Q2

REPORT INFORMATION
  Report Type: Spontaneous
  Country: US (occurrence: US)
  Receive Date: 20190408
  Receipt Date: 20190426
  Transmission Date: 20190711
  Serious: Yes (Death, Hospitalization, Other)
  Sender: FDA-Public Use
  Company Number: US-BRISTOL-MYERS SQUIBB COMPANY-BMS-2019-033757

PATIENT
  Sex: Female

DRUGS (2)
  1. OPDIVO [Suspect]
     Active Substance: NIVOLUMAB
     Indication: RENAL CELL CARCINOMA
     Dosage: 480 MILLIGRAM, EVERY 28 DAYS
     Route: 042
     Dates: start: 20190109, end: 20190130
  2. YERVOY [Suspect]
     Active Substance: IPILIMUMAB
     Indication: RENAL CELL CARCINOMA
     Dosage: 310 MILLIGRAM, EVERY 28 DAYS
     Route: 042
     Dates: start: 20190109, end: 20190130

REACTIONS (2)
  - End stage renal disease [Fatal]
  - Malignant neoplasm progression [Fatal]
